FAERS Safety Report 7846403-4 (Version None)
Quarter: 2011Q4

REPORT INFORMATION
  Report Type: 
  Country: None (occurrence: None)
  Receive Date: 20111025
  Receipt Date: 20111025
  Transmission Date: 20120403
  Serious: No
  Sender: FDA-Public Use
  Company Number: None

PATIENT
  Age: 31 Year
  Sex: Female

DRUGS (1)
  1. RITUXAN [Suspect]
     Indication: WEGENER'S GRANULOMATOSIS
     Dosage: NOT PROVIDED

REACTIONS (3)
  - INFUSION RELATED REACTION [None]
  - APNOEA [None]
  - COUGH [None]
